FAERS Safety Report 23888236 (Version 1)
Quarter: 2024Q2

REPORT INFORMATION
  Report Type: Spontaneous
  Country: CN (occurrence: CN)
  Receive Date: 20240523
  Receipt Date: 20240523
  Transmission Date: 20240716
  Serious: Yes (Hospitalization, Other)
  Sender: FDA-Public Use
  Company Number: CN-ELI_LILLY_AND_COMPANY-CN202405004259

PATIENT
  Age: 84 Year
  Sex: Female

DRUGS (5)
  1. OLANZAPINE [Suspect]
     Active Substance: OLANZAPINE
     Indication: Schizophrenia
     Dosage: DAILY DOSE: 5 MILLIGRAM
     Route: 048
  2. OLANZAPINE [Suspect]
     Active Substance: OLANZAPINE
     Indication: Schizophrenia
     Dosage: DAILY DOSE: 2.5 MILLIGRAM
  3. AMLODIPINE BESYLATE [Concomitant]
     Active Substance: AMLODIPINE BESYLATE
     Indication: Hypertension
  4. Yangxue Qingnao granule [Concomitant]
  5. Xuanyun tablet [Concomitant]

REACTIONS (10)
  - Extrapyramidal disorder [Recovered/Resolved]
  - Dizziness [Unknown]
  - Hypertension [Unknown]
  - Vertigo [Unknown]
  - Mental disorder [Unknown]
  - Carotid artery disease [Unknown]
  - Head discomfort [Unknown]
  - Condition aggravated [Unknown]
  - Pneumonitis [Unknown]
  - Pulmonary mass [Unknown]
